FAERS Safety Report 7035767-X (Version None)
Quarter: 2010Q4

REPORT INFORMATION
  Report Type: 
  Country: None (occurrence: None)
  Receive Date: 20101007
  Receipt Date: 20101007
  Transmission Date: 20110411
  Serious: Yes (Death)
  Sender: FDA-Public Use
  Company Number: None

PATIENT
  Sex: Male

DRUGS (2)
  1. FLUORESCEIN SODIUM [Suspect]
     Indication: SCAN
     Dosage: IV
     Route: 042
  2. FLUORESCEIN SODIUM [Suspect]
     Indication: UNRESPONSIVE TO STIMULI
     Dosage: IV
     Route: 042

REACTIONS (3)
  - MALAISE [None]
  - RETCHING [None]
  - UNRESPONSIVE TO STIMULI [None]
